FAERS Safety Report 24220761 (Version 1)
Quarter: 2024Q3

REPORT INFORMATION
  Report Type: Spontaneous
  Country: AR (occurrence: AR)
  Receive Date: 20240818
  Receipt Date: 20240818
  Transmission Date: 20241017
  Serious: Yes (Other)
  Sender: AMGEN
  Company Number: AR-PFIZER INC-202400224603

PATIENT
  Age: 67 Year
  Sex: Female

DRUGS (1)
  1. ENBREL [Suspect]
     Active Substance: BENZYL ALCOHOL\ETANERCEPT
     Indication: Rheumatoid arthritis
     Dosage: 50 MG, WEEKLY
     Route: 065
     Dates: start: 20140501

REACTIONS (2)
  - Poisoning [Unknown]
  - Bronchitis [Not Recovered/Not Resolved]
